FAERS Safety Report 16963577 (Version 8)
Quarter: 2023Q1

REPORT INFORMATION
  Report Type: Report from Study
  Country: US (occurrence: US)
  Receive Date: 20191025
  Receipt Date: 20230203
  Transmission Date: 20230418
  Serious: Yes (Hospitalization)
  Sender: FDA-Public Use
  Company Number: US-GILEAD-2019-0417564

PATIENT
  Age: 65 Year
  Sex: Male
  Weight: 141 kg

DRUGS (102)
  1. AXICABTAGENE CILOLEUCEL [Suspect]
     Active Substance: AXICABTAGENE CILOLEUCEL
     Indication: Diffuse large B-cell lymphoma refractory
     Dosage: 68 ML, ONCE
     Route: 042
     Dates: start: 20190625, end: 20190625
  2. FLUDARABINE [Suspect]
     Active Substance: FLUDARABINE PHOSPHATE
     Indication: Bone marrow conditioning regimen
     Dosage: 30 MG/M2
     Route: 042
     Dates: start: 20190620, end: 20190622
  3. CYCLOPHOSPHAMIDE [Suspect]
     Active Substance: CYCLOPHOSPHAMIDE
     Indication: Bone marrow conditioning regimen
     Dosage: 500 MG/M2
     Route: 042
     Dates: start: 20190620, end: 20190622
  4. DEXAMETHASONE [Suspect]
     Active Substance: DEXAMETHASONE
     Indication: Neurotoxicity
     Dosage: 10 MG, BID
     Route: 042
     Dates: start: 20190701, end: 20190707
  5. DEXAMETHASONE [Suspect]
     Active Substance: DEXAMETHASONE
     Dosage: 8 MG, BID
     Route: 042
     Dates: start: 20190707, end: 20190708
  6. DEXAMETHASONE [Suspect]
     Active Substance: DEXAMETHASONE
     Dosage: 10 MG, BID
     Route: 042
     Dates: start: 20190710, end: 20190711
  7. DEXAMETHASONE [Suspect]
     Active Substance: DEXAMETHASONE
     Dosage: 8 MG, BID
     Route: 042
     Dates: start: 20190711, end: 20190712
  8. DEXAMETHASONE [Suspect]
     Active Substance: DEXAMETHASONE
     Dosage: 6 MG, BID
     Route: 042
     Dates: start: 20190713, end: 20190714
  9. DEXAMETHASONE [Suspect]
     Active Substance: DEXAMETHASONE
     Dosage: 4 MG, QD
     Route: 042
     Dates: start: 20190714, end: 20190715
  10. DEXAMETHASONE [Suspect]
     Active Substance: DEXAMETHASONE
     Dosage: 2 MG, ONCE
     Route: 042
     Dates: start: 20190715, end: 20190715
  11. DEXAMETHASONE [Suspect]
     Active Substance: DEXAMETHASONE
     Dosage: 2 MG, TID
     Route: 042
     Dates: start: 20190716, end: 20190716
  12. DEXAMETHASONE [Suspect]
     Active Substance: DEXAMETHASONE
     Dosage: 4 MG, ONCE
     Route: 042
     Dates: start: 20190717, end: 20190717
  13. DEXAMETHASONE [Suspect]
     Active Substance: DEXAMETHASONE
     Dosage: 2 MG, ONCE
     Route: 042
     Dates: start: 20190717, end: 20190717
  14. DEXAMETHASONE [Suspect]
     Active Substance: DEXAMETHASONE
     Dosage: 4 MG, QD
     Route: 042
     Dates: start: 20190718, end: 20190720
  15. DEXAMETHASONE [Suspect]
     Active Substance: DEXAMETHASONE
     Dosage: 2 MG, QD
     Route: 042
     Dates: start: 20190718, end: 20190720
  16. DEXAMETHASONE [Suspect]
     Active Substance: DEXAMETHASONE
     Dosage: 2 MG, QD
     Route: 048
     Dates: start: 20190721, end: 20190721
  17. DEXAMETHASONE [Suspect]
     Active Substance: DEXAMETHASONE
     Dosage: 2 MG
     Route: 042
     Dates: start: 20190721, end: 20190722
  18. DEXAMETHASONE [Suspect]
     Active Substance: DEXAMETHASONE
     Dosage: 2 MG, ONCE
     Route: 042
     Dates: start: 20190716, end: 20190716
  19. DEXAMETHASONE [Suspect]
     Active Substance: DEXAMETHASONE
     Dosage: 2 MG, ONCE
     Route: 042
     Dates: start: 20190716, end: 20190716
  20. DEXAMETHASONE [Suspect]
     Active Substance: DEXAMETHASONE
     Dosage: 4 MG, QD
     Route: 048
     Dates: start: 20190721, end: 20190722
  21. DEXAMETHASONE [Suspect]
     Active Substance: DEXAMETHASONE
     Dosage: 4 MG, ONCE
     Route: 042
     Dates: start: 20190717, end: 20190717
  22. LEVAQUIN [Concomitant]
     Active Substance: LEVOFLOXACIN
  23. INSULIN NOS [Concomitant]
     Active Substance: INSULIN NOS
     Dosage: 1,OTHER,ONCE
     Route: 058
     Dates: start: 20190627, end: 20190627
  24. AZOPT [Concomitant]
     Active Substance: BRINZOLAMIDE
     Dosage: 1,OTHER,TWICE DAILY; 1% OPHALMIC SUSPENSION
     Route: 031
     Dates: start: 20190614
  25. METFORMIN [Concomitant]
     Active Substance: METFORMIN HYDROCHLORIDE
     Dosage: 1000,MG,TWICE DAILY
     Route: 048
     Dates: start: 20190614
  26. KEPPRA [Concomitant]
     Active Substance: LEVETIRACETAM
     Dosage: 500,MG,TWICE DAILY
     Route: 048
     Dates: start: 20190615, end: 20190706
  27. KEPPRA [Concomitant]
     Active Substance: LEVETIRACETAM
     Dosage: 500,MG,TWICE DAILY
     Route: 048
     Dates: start: 20190713, end: 20190722
  28. FENTANYL [Concomitant]
     Active Substance: FENTANYL
     Dosage: 50,UG,ONCE
     Route: 042
     Dates: start: 20190619, end: 20190619
  29. FENTANYL [Concomitant]
     Active Substance: FENTANYL
     Dosage: 25,UG,FOUR TIMES DAILY
     Route: 042
     Dates: start: 20190619, end: 20190619
  30. MIDAZOLAM [Concomitant]
     Active Substance: MIDAZOLAM
     Dosage: 0.5,MG,FOUR TIMES DAILY
     Route: 042
     Dates: start: 20190619, end: 20190619
  31. MIDAZOLAM [Concomitant]
     Active Substance: MIDAZOLAM
     Dosage: 1,MG,ONCE
     Route: 042
     Dates: start: 20190619, end: 20190619
  32. SODIUM CHLORIDE [Concomitant]
     Active Substance: SODIUM CHLORIDE
     Dosage: 500,ML,CONTINUOUS
     Route: 042
     Dates: start: 20190619, end: 20190619
  33. SODIUM CHLORIDE [Concomitant]
     Active Substance: SODIUM CHLORIDE
     Dosage: 1000,ML,CONTINUOUS
     Route: 042
     Dates: start: 20190620, end: 20190620
  34. SODIUM CHLORIDE [Concomitant]
     Active Substance: SODIUM CHLORIDE
     Dosage: 1000,ML,CONTINUOUS
     Route: 042
     Dates: start: 20190620, end: 20190621
  35. SODIUM CHLORIDE [Concomitant]
     Active Substance: SODIUM CHLORIDE
     Dosage: 1000,ML,DAILY
     Route: 042
     Dates: start: 20190621, end: 20190625
  36. SODIUM CHLORIDE [Concomitant]
     Active Substance: SODIUM CHLORIDE
     Dosage: 500 ML
     Route: 042
     Dates: start: 20190625, end: 20190625
  37. SODIUM CHLORIDE [Concomitant]
     Active Substance: SODIUM CHLORIDE
     Dosage: 500 ML
     Route: 042
     Dates: start: 20190625, end: 20190625
  38. SODIUM CHLORIDE [Concomitant]
     Active Substance: SODIUM CHLORIDE
     Dosage: 1000,ML,CONTINUOUS
     Route: 042
     Dates: start: 20190703, end: 20190703
  39. ENTECAVIR [Concomitant]
     Active Substance: ENTECAVIR
     Dosage: 0.5,MG,DAILY; 5 MG ORAL TABLET
     Dates: start: 20190625, end: 20190706
  40. ENTECAVIR [Concomitant]
     Active Substance: ENTECAVIR
     Dosage: 0.5 MG, QOD
     Route: 048
     Dates: start: 20190710, end: 20190712
  41. ENTECAVIR [Concomitant]
     Active Substance: ENTECAVIR
     Dosage: 0.5,MG,DAILY; 5 MG ORAL TABLET
     Route: 048
     Dates: start: 20190713, end: 20190721
  42. ENTECAVIR [Concomitant]
     Active Substance: ENTECAVIR
     Dosage: 0.5,MG,CONTINUOUS
     Route: 048
     Dates: start: 20190708, end: 20190708
  43. ALBUTEROL [Concomitant]
     Active Substance: ALBUTEROL
     Dosage: 3,ML,ONCE
     Route: 055
     Dates: start: 20190620, end: 20190620
  44. ALBUTEROL [Concomitant]
     Active Substance: ALBUTEROL
     Dosage: 3,ML,ONCE
     Route: 055
     Dates: start: 20190702, end: 20190702
  45. PENTAMIDINE [Concomitant]
     Active Substance: PENTAMIDINE
     Dosage: 300,MG,ONCE
     Route: 055
     Dates: start: 20190620, end: 20190620
  46. PALONOSETRON [Concomitant]
     Active Substance: PALONOSETRON
     Dosage: 250,UG,ONCE
     Route: 042
     Dates: start: 20190620, end: 20190620
  47. AQUAPHOR [WHITE SOFT PARAFFIN] [Concomitant]
     Dosage: 1,OTHER,AS NECESSARY
     Route: 061
     Dates: start: 20190624, end: 20190704
  48. PIPERACILLIN AND TAZOBACTAM [Concomitant]
     Active Substance: PIPERACILLIN SODIUM\TAZOBACTAM SODIUM
     Dosage: 4.5,G,FOUR TIMES DAILY
     Route: 042
     Dates: start: 20190630, end: 20190704
  49. PIPERACILLIN AND TAZOBACTAM [Concomitant]
     Active Substance: PIPERACILLIN SODIUM\TAZOBACTAM SODIUM
     Dosage: 4.5,G,OTHER
     Route: 042
     Dates: start: 20190708, end: 20190709
  50. PIPERACILLIN AND TAZOBACTAM [Concomitant]
     Active Substance: PIPERACILLIN SODIUM\TAZOBACTAM SODIUM
     Dosage: 4.5,G,ONCE
     Route: 042
     Dates: start: 20190716, end: 20190716
  51. PIPERACILLIN AND TAZOBACTAM [Concomitant]
     Active Substance: PIPERACILLIN SODIUM\TAZOBACTAM SODIUM
     Dosage: 4.5,G,OTHER
     Route: 042
     Dates: start: 20190716, end: 20190717
  52. INSULIN ASPART PROTAMINE [Concomitant]
     Dosage: 2,OTHER,AS NECESSARY
     Route: 058
     Dates: start: 20190626, end: 20190626
  53. INSULIN ASPART PROTAMINE [Concomitant]
     Dosage: 1,OTHER,ONCE
     Route: 058
     Dates: start: 20190627, end: 20190627
  54. INSULIN ASPART PROTAMINE [Concomitant]
     Dosage: 1,OTHER,ONCE
     Route: 058
     Dates: start: 20190629, end: 20190629
  55. INSULIN ASPART PROTAMINE [Concomitant]
     Dosage: 8,OTHER,AS NECESSARY
     Route: 058
     Dates: start: 20190630, end: 20190630
  56. INSULIN ASPART PROTAMINE [Concomitant]
     Dosage: 8,OTHER,AS NECESSARY
     Route: 058
     Dates: start: 20190701, end: 20190701
  57. INSULIN ASPART PROTAMINE [Concomitant]
     Dosage: 19,OTHER,AS NECESSARY
     Route: 058
     Dates: start: 20190702, end: 20190702
  58. INSULIN ASPART PROTAMINE [Concomitant]
     Dosage: 24,OTHER,AS NECESSARY
     Route: 058
     Dates: start: 20190703, end: 20190703
  59. INSULIN ASPART PROTAMINE [Concomitant]
     Dosage: 40,OTHER,AS NECESSARY
     Route: 058
     Dates: start: 20190704, end: 20190704
  60. INSULIN ASPART PROTAMINE [Concomitant]
     Dosage: 46,OTHER,AS NECESSARY
     Route: 058
     Dates: start: 20190705, end: 20190705
  61. DIPHENHYDRAMINE [Concomitant]
     Active Substance: DIPHENHYDRAMINE
     Dosage: 25,MG,ONCE
     Route: 048
     Dates: start: 20190625, end: 20190625
  62. BRINZOLAMIDE [Concomitant]
     Active Substance: BRINZOLAMIDE
     Dosage: 1,OTHER,TWICE DAILY
     Route: 031
     Dates: start: 20190625, end: 20190722
  63. ACETAMINOPHEN [Concomitant]
     Active Substance: ACETAMINOPHEN
     Dosage: 650,MG,ONCE
     Route: 048
     Dates: start: 20190625, end: 20190625
  64. ACETAMINOPHEN [Concomitant]
     Active Substance: ACETAMINOPHEN
     Dosage: 650,MG,ONCE
     Route: 048
     Dates: start: 20190701, end: 20190701
  65. ACETAMINOPHEN [Concomitant]
     Active Substance: ACETAMINOPHEN
     Dosage: 650,MG,ONCE
     Route: 048
     Dates: start: 20190724, end: 20190724
  66. ASPIRIN [Concomitant]
     Active Substance: ASPIRIN
     Dosage: 81,MG,DAILY
     Route: 048
     Dates: start: 20190625, end: 20190722
  67. ATENOLOL [Concomitant]
     Active Substance: ATENOLOL
     Dosage: 50,MG,TWICE DAILY
     Route: 048
     Dates: start: 20190624, end: 20190702
  68. ATENOLOL [Concomitant]
     Active Substance: ATENOLOL
     Dosage: 50,MG,TWICE DAILY
     Route: 048
     Dates: start: 20190704, end: 20190706
  69. VITAMIN D3 [Concomitant]
     Active Substance: CHOLECALCIFEROL
     Dosage: 2000,OTHER,DAILY
     Route: 048
     Dates: start: 20190625, end: 20190722
  70. TRAVOPROST [Concomitant]
     Active Substance: TRAVOPROST
     Dosage: 1,OTHER,TWICE DAILY
     Route: 031
     Dates: start: 20190624, end: 20190712
  71. TRAVOPROST [Concomitant]
     Active Substance: TRAVOPROST
     Dosage: 1,OTHER,DAILY
     Dates: start: 20190624, end: 20190721
  72. ENALAPRIL [Concomitant]
     Active Substance: ENALAPRIL
     Dosage: 20,MG,DAILY
     Route: 048
     Dates: start: 20190625, end: 20190701
  73. ENALAPRIL [Concomitant]
     Active Substance: ENALAPRIL
     Dosage: 10,MG,DAILY
     Route: 048
     Dates: start: 20190714, end: 20190721
  74. ENALAPRIL [Concomitant]
     Active Substance: ENALAPRIL
     Dosage: 0.625,MG, QID
     Route: 042
     Dates: start: 20190707, end: 20190707
  75. ENALAPRIL [Concomitant]
     Active Substance: ENALAPRIL
     Dosage: 0.625,MG, ONCE
     Route: 042
     Dates: start: 20190708, end: 20190708
  76. ENALAPRIL [Concomitant]
     Active Substance: ENALAPRIL
     Dosage: 1.25,MG, ONCE
     Route: 042
     Dates: start: 20190708, end: 20190708
  77. ENALAPRIL [Concomitant]
     Active Substance: ENALAPRIL
     Dosage: 20,MG,DAILY
     Route: 048
     Dates: start: 20190714, end: 20190715
  78. LORAZEPAM [Concomitant]
     Active Substance: LORAZEPAM
     Dosage: 0.5,MG,ONCE
     Route: 048
     Dates: start: 20190624, end: 20190624
  79. LORAZEPAM [Concomitant]
     Active Substance: LORAZEPAM
     Dosage: 1,MG,ONCE
     Route: 042
     Dates: start: 20190703, end: 20190703
  80. LORAZEPAM [Concomitant]
     Active Substance: LORAZEPAM
     Dosage: 1,MG,TWICE DAILY
     Route: 042
     Dates: start: 20190706, end: 20190707
  81. SENNATAB [Concomitant]
     Dosage: 17.2,MG,DAILY
     Route: 048
     Dates: start: 20190624, end: 20190701
  82. SENNATAB [Concomitant]
     Dosage: 17.2,MG,AS NECESSARY
     Route: 048
     Dates: start: 20190626, end: 20190721
  83. DILTIAZEM HYDROCHLORIDE [Concomitant]
     Active Substance: DILTIAZEM HYDROCHLORIDE
     Dosage: 75,MG,FOUR TIMES DAILY
     Route: 048
     Dates: start: 20190624, end: 20190702
  84. DILTIAZEM HYDROCHLORIDE [Concomitant]
     Active Substance: DILTIAZEM HYDROCHLORIDE
     Dosage: 75 MG, QID
     Dates: start: 20190713, end: 20190722
  85. DILTIAZEM HYDROCHLORIDE [Concomitant]
     Active Substance: DILTIAZEM HYDROCHLORIDE
     Dosage: 75,MG,FOUR TIMES DAILY
     Route: 048
     Dates: start: 20190704, end: 20190706
  86. BACITRACIN [Concomitant]
     Active Substance: BACITRACIN
     Dosage: 1,OTHER,DAILY
     Route: 061
     Dates: start: 20190624, end: 20190712
  87. DOCUSATE SODIUM [Concomitant]
     Active Substance: DOCUSATE SODIUM
     Dosage: 100,MG,AS NECESSARY
     Route: 048
     Dates: start: 20190624, end: 20190708
  88. DOCUSATE SODIUM [Concomitant]
     Active Substance: DOCUSATE SODIUM
     Dosage: 100,MG,AS NECESSARY
     Route: 048
     Dates: start: 20190628, end: 20190708
  89. LEVETIRACETAM [Concomitant]
     Active Substance: LEVETIRACETAM
     Dosage: 500,MG,TWICE DAILY
     Route: 048
     Dates: start: 20190624, end: 20190706
  90. LEVETIRACETAM [Concomitant]
     Active Substance: LEVETIRACETAM
     Dosage: 500,MG,TWICE DAILY
     Route: 042
     Dates: start: 20190707, end: 20190712
  91. FLUCONAZOLE [Concomitant]
     Active Substance: FLUCONAZOLE
     Dosage: 200,MG,DAILY
     Route: 048
     Dates: start: 20190624, end: 20190707
  92. FLUCONAZOLE [Concomitant]
     Active Substance: FLUCONAZOLE
     Dosage: UNK
     Dates: start: 202207
  93. ACYCLOVIR [Concomitant]
     Active Substance: ACYCLOVIR
     Dosage: 400,MG,TWICE DAILY
     Route: 048
     Dates: start: 20190624, end: 20190706
  94. ACYCLOVIR [Concomitant]
     Active Substance: ACYCLOVIR
     Dosage: 400 MG, BID
     Route: 042
     Dates: start: 20190707, end: 20190709
  95. ACYCLOVIR [Concomitant]
     Active Substance: ACYCLOVIR
     Dosage: 400 MG, BID
     Route: 042
     Dates: start: 20190710, end: 20190711
  96. ACYCLOVIR [Concomitant]
     Active Substance: ACYCLOVIR
     Dosage: 400 MG, QD
     Route: 048
     Dates: start: 20190712, end: 20190722
  97. CLONIDINE [Concomitant]
     Active Substance: CLONIDINE
     Dosage: 0.1 MG, ONCE
     Dates: start: 20190624, end: 20190706
  98. CLONIDINE [Concomitant]
     Active Substance: CLONIDINE
     Dosage: 0.1 MG/24 HR PATCH
     Route: 062
     Dates: start: 20190707, end: 20190717
  99. CLONIDINE [Concomitant]
     Active Substance: CLONIDINE
     Dosage: 0.1 MG, BID
     Route: 048
     Dates: start: 20190719, end: 20190722
  100. AMIODARONE [Concomitant]
     Active Substance: AMIODARONE
  101. APIXABAN [Concomitant]
     Active Substance: APIXABAN
     Dosage: 5,MG,TWICE DAILY
     Route: 048
     Dates: start: 20210921
  102. MICAFUNGIN [Concomitant]
     Active Substance: MICAFUNGIN
     Dosage: 150,MG,DAILY
     Route: 042
     Dates: start: 20220706, end: 20220805

REACTIONS (6)
  - Cognitive disorder [Recovered/Resolved]
  - Tremor [Recovered/Resolved]
  - Confusional state [Recovered/Resolved]
  - Agitation [Recovered/Resolved]
  - Aphasia [Recovered/Resolved]
  - Fungal cystitis [Recovered/Resolved]

NARRATIVE: CASE EVENT DATE: 20190701
